FAERS Safety Report 7778142-2 (Version None)
Quarter: 2011Q3

REPORT INFORMATION
  Report Type: 
  Country: None (occurrence: None)
  Receive Date: 20110926
  Receipt Date: 20101207
  Transmission Date: 20111222
  Serious: No
  Sender: FDA-Public Use
  Company Number: US-MUTUAL PHARMACEUTICAL COMPANY, INC.-2010P1003180

PATIENT
  Age: 74 Year
  Sex: Female

DRUGS (1)
  1. BACTRIM [Suspect]

REACTIONS (4)
  - TONGUE DISORDER [None]
  - GLOSSODYNIA [None]
  - DRUG HYPERSENSITIVITY [None]
  - TONGUE HAEMORRHAGE [None]
